FAERS Safety Report 9204811 (Version 2)
Quarter: 2013Q2

REPORT INFORMATION
  Report Type: Spontaneous
  Country: NL (occurrence: NL)
  Receive Date: 20130402
  Receipt Date: 20130614
  Transmission Date: 20140414
  Serious: Yes (Death, Hospitalization)
  Sender: FDA-Public Use
  Company Number: NL-GLAXOSMITHKLINE-B0879676A

PATIENT
  Age: 57 Year
  Sex: Male
  Weight: 51.6 kg

DRUGS (4)
  1. VOTRIENT [Suspect]
     Indication: PRODUCT USED FOR UNKNOWN INDICATION
     Dosage: 800MG PER DAY
     Route: 065
     Dates: start: 20130222, end: 20130324
  2. PREDNISON [Concomitant]
     Dosage: 15MG PER DAY
     Dates: start: 20130210
  3. TEMAZEPAM [Concomitant]
  4. PARACETAMOL [Concomitant]

REACTIONS (4)
  - Death [Fatal]
  - Gastric haemorrhage [Recovered/Resolved]
  - Melaena [Recovered/Resolved]
  - Malaise [Recovered/Resolved]
